FAERS Safety Report 5820321-5 (Version None)
Quarter: 2008Q3

REPORT INFORMATION
  Report Type: 
  Country: None (occurrence: None)
  Receive Date: 20080724
  Receipt Date: 20070606
  Transmission Date: 20090109
  Serious: No
  Sender: FDA-Public Use
  Company Number: A0654439A

PATIENT
  Sex: Female

DRUGS (4)
  1. AVANDIA [Suspect]
     Dosage: 4MG TWICE PER DAY
     Route: 048
     Dates: end: 20070520
  2. GLYBURIDE [Concomitant]
  3. STARLIX [Concomitant]
  4. FLUID THERAPY (UNSPECIFIED) [Concomitant]

REACTIONS (1)
  - WEIGHT INCREASED [None]
